FAERS Safety Report 5277756-1 (Version None)
Quarter: 2007Q1

REPORT INFORMATION
  Report Type: 
  Country: None (occurrence: None)
  Receive Date: 20070327
  Receipt Date: 20070315
  Transmission Date: 20070707
  Serious: Yes (Hospitalization, Other)
  Sender: FDA-Public Use
  Company Number: US-PFIZER INC-2005140617

PATIENT
  Sex: Female

DRUGS (5)
  1. NEURONTIN [Suspect]
     Indication: PAIN
     Dosage: FREQ:UNKNOWN
     Route: 065
  2. NEURONTIN [Suspect]
     Indication: DEPRESSION
  3. NEURONTIN [Suspect]
     Indication: BIPOLAR DISORDER
  4. ALL OTHER THERAPEUTIC PRODUCTS [Suspect]
  5. AMBIEN [Suspect]

REACTIONS (5)
  - DRUG INEFFECTIVE FOR UNAPPROVED INDICATION [None]
  - LOSS OF CONSCIOUSNESS [None]
  - MULTIPLE DRUG OVERDOSE INTENTIONAL [None]
  - ROAD TRAFFIC ACCIDENT [None]
  - SUICIDE ATTEMPT [None]
